FAERS Safety Report 26039645 (Version 1)
Quarter: 2025Q4

REPORT INFORMATION
  Report Type: Spontaneous
  Country: EU (occurrence: EU)
  Receive Date: 20251113
  Receipt Date: 20251113
  Transmission Date: 20260118
  Serious: Yes (Other)
  Sender: JOHNSON AND JOHNSON
  Company Number: EU-JNJFOC-20251148805

PATIENT
  Age: 75 Year
  Sex: Female

DRUGS (15)
  1. AMIVANTAMAB [Suspect]
     Active Substance: AMIVANTAMAB
     Indication: Product used for unknown indication
     Dosage: C1D1 INFUSION RATE  50CC/H
     Route: 065
  2. AMIVANTAMAB [Suspect]
     Active Substance: AMIVANTAMAB
     Dosage: C1D2 INFUSION RATE AT 65 CC/H; PERFUSION RESUMED AT 30CC/H WITH TOLERANCE AND CONTINUED AT THE PERFU
     Route: 065
  3. AMIVANTAMAB [Suspect]
     Active Substance: AMIVANTAMAB
     Dosage: C1D8 (S2) INFUSION RATE AT 65 CC/H
     Route: 065
  4. AMIVANTAMAB [Suspect]
     Active Substance: AMIVANTAMAB
     Dosage: C1D15 (S3) INFUSION RATE AT 85 CC/H
     Route: 065
  5. AMIVANTAMAB [Suspect]
     Active Substance: AMIVANTAMAB
     Dosage: C2 (S4) INFUSION RATE AT 125 CC/H
     Route: 065
  6. AMIVANTAMAB [Suspect]
     Active Substance: AMIVANTAMAB
     Dosage: C3 (S7) INFUSION RATE AT 125 CC/H. THE DOSE REMAINED AT 1400MG
     Route: 065
  7. PEMETREXED [Suspect]
     Active Substance: PEMETREXED
     Indication: Product used for unknown indication
     Route: 065
  8. CARBOPLATIN [Suspect]
     Active Substance: CARBOPLATIN
     Indication: Product used for unknown indication
     Route: 065
  9. VITAMIN B12 [Concomitant]
     Active Substance: CYANOCOBALAMIN
     Indication: Product used for unknown indication
  10. NEOBEFOL [Concomitant]
     Indication: Product used for unknown indication
  11. DEXAMETHASONE [Concomitant]
     Active Substance: DEXAMETHASONE
     Indication: Premedication
     Route: 042
  12. DEXAMETHASONE [Concomitant]
     Active Substance: DEXAMETHASONE
     Dosage: DAYS D-2 AND D1
  13. DEXAMETHASONE [Concomitant]
     Active Substance: DEXAMETHASONE
     Route: 042
  14. ONDANSETRON [Concomitant]
     Active Substance: ONDANSETRON
     Indication: Premedication
     Route: 042
  15. ACETAMINOPHEN [Concomitant]
     Active Substance: ACETAMINOPHEN
     Indication: Product used for unknown indication
     Route: 048

REACTIONS (4)
  - Skin toxicity [Unknown]
  - Rash [Unknown]
  - Infusion related reaction [Unknown]
  - Stomatitis [Recovered/Resolved]
